FAERS Safety Report 19833860 (Version 1)
Quarter: 2021Q3

REPORT INFORMATION
  Report Type: Spontaneous
  Country: PL (occurrence: PL)
  Receive Date: 20210915
  Receipt Date: 20210915
  Transmission Date: 20211014
  Serious: Yes (Hospitalization, Other)
  Sender: FDA-Public Use
  Company Number: PL-MYLANLABS-2021M1061612

PATIENT
  Age: 66 Year
  Sex: Male

DRUGS (5)
  1. ADALIMUMAB [Suspect]
     Active Substance: ADALIMUMAB
     Indication: CROHN^S DISEASE
     Dosage: UNK
     Route: 058
     Dates: start: 20191010, end: 20200225
  2. ADALIMUMAB [Suspect]
     Active Substance: ADALIMUMAB
     Dosage: UNK
     Route: 058
     Dates: start: 20170517, end: 20180511
  3. ADALIMUMAB [Suspect]
     Active Substance: ADALIMUMAB
     Dosage: UNK
     Route: 058
     Dates: start: 20180801, end: 20190731
  4. ADALIMUMAB [Suspect]
     Active Substance: ADALIMUMAB
     Dosage: UNK
     Route: 058
     Dates: start: 20160216, end: 201702
  5. MESALAZINE [Concomitant]
     Active Substance: MESALAMINE
     Indication: CROHN^S DISEASE
     Dosage: UNK
     Route: 065

REACTIONS (6)
  - Pneumonia [Recovered/Resolved]
  - Nephrotic syndrome [Recovered/Resolved]
  - Renal impairment [Recovered/Resolved]
  - Therapeutic product effect decreased [Unknown]
  - Crohn^s disease [Unknown]
  - Serum amyloid A protein increased [Recovered/Resolved]

NARRATIVE: CASE EVENT DATE: 20180514
